FAERS Safety Report 6556733-4 (Version None)
Quarter: 2010Q1

REPORT INFORMATION
  Report Type: 
  Country: None (occurrence: None)
  Receive Date: 20100128
  Receipt Date: 20100122
  Transmission Date: 20100710
  Serious: Yes (Other)
  Sender: FDA-Public Use
  Company Number: US-GENENTECH-296253

PATIENT
  Sex: Male
  Weight: 53.515 kg

DRUGS (5)
  1. XOLAIR [Suspect]
     Indication: DRUG USE FOR UNKNOWN INDICATION
     Dosage: UNK
     Route: 065
  2. CELLCEPT [Suspect]
     Indication: ECZEMA
     Dosage: 500 MG, BID
     Route: 048
     Dates: start: 20080201
  3. DOXEPIN HCL [Concomitant]
     Indication: DRUG USE FOR UNKNOWN INDICATION
     Dosage: 20 MG, UNK
     Dates: start: 20080201
  4. INHALER (TYPE UNKNOWN) [Concomitant]
     Indication: DRUG USE FOR UNKNOWN INDICATION
  5. ALLERGY SHOT [Concomitant]
     Indication: DRUG USE FOR UNKNOWN INDICATION
     Dosage: 3 UNK, 3/MONTH

REACTIONS (1)
  - INFLUENZA [None]
